FAERS Safety Report 23135502 (Version 1)
Quarter: 2023Q4

REPORT INFORMATION
  Report Type: Report from Study
  Country: CO (occurrence: CO)
  Receive Date: 20231101
  Receipt Date: 20231101
  Transmission Date: 20240110
  Serious: Yes (Death, Life-Threatening, Other)
  Sender: FDA-Public Use
  Company Number: CO-ABBVIE-5476266

PATIENT
  Age: 68 Year
  Sex: Female

DRUGS (1)
  1. ZEMPLAR [Suspect]
     Active Substance: PARICALCITOL
     Indication: Hyperparathyroidism secondary
     Dosage: FORM STRENGTH: 5 MICROGRAM
     Route: 065
     Dates: start: 20160831, end: 20230804

REACTIONS (2)
  - Cardio-respiratory arrest [Fatal]
  - Critical illness [Not Recovered/Not Resolved]

NARRATIVE: CASE EVENT DATE: 20230901
